FAERS Safety Report 6312358-7 (Version None)
Quarter: 2009Q3

REPORT INFORMATION
  Report Type: 
  Country: None (occurrence: None)
  Receive Date: 20090817
  Receipt Date: 20090811
  Transmission Date: 20100115
  Serious: Yes (Other)
  Sender: FDA-Public Use
  Company Number: PHHY2009BR33949

PATIENT
  Age: 40 Year
  Sex: Male
  Weight: 57 kg

DRUGS (2)
  1. TEGRETOL [Suspect]
     Indication: EPILEPSY
     Dosage: 1 DF, QID
     Route: 048
     Dates: start: 20050101
  2. TEGRETOL [Suspect]
     Dosage: 1.5 DF, BID
     Route: 048

REACTIONS (4)
  - BLOOD URINE PRESENT [None]
  - SOMNOLENCE [None]
  - SPEECH DISORDER [None]
  - VISION BLURRED [None]
